FAERS Safety Report 25274229 (Version 2)
Quarter: 2025Q2

REPORT INFORMATION
  Report Type: Spontaneous
  Country: US (occurrence: US)
  Receive Date: 20250506
  Receipt Date: 20250520
  Transmission Date: 20250716
  Serious: Yes (Other)
  Sender: CALLIDITAS THERAPEUTICS AB
  Company Number: US-Calliditas-2025CAL00981

PATIENT
  Age: 19 Year
  Sex: Female

DRUGS (6)
  1. TARPEYO [Suspect]
     Active Substance: BUDESONIDE
     Indication: IgA nephropathy
     Route: 048
     Dates: start: 20250324
  2. LOSARTAN [Concomitant]
     Active Substance: LOSARTAN
  3. VITAMINS [Concomitant]
     Active Substance: VITAMINS
  4. BACTRIM DS [Concomitant]
     Active Substance: SULFAMETHOXAZOLE\TRIMETHOPRIM
  5. PROBIOTICS NOS [Concomitant]
     Active Substance: PROBIOTICS NOS
  6. PREBIOTICS NOS [Concomitant]

REACTIONS (4)
  - Prescribed underdose [Unknown]
  - Amenorrhoea [Not Recovered/Not Resolved]
  - Arrhythmia [Not Recovered/Not Resolved]
  - Paraesthesia [Unknown]
